FAERS Safety Report 17593605 (Version 2)
Quarter: 2020Q2

REPORT INFORMATION
  Report Type: Spontaneous
  Country: US (occurrence: US)
  Receive Date: 20200328
  Receipt Date: 20200410
  Transmission Date: 20200713
  Serious: No
  Sender: FDA-Public Use
  Company Number: US-GLAXOSMITHKLINE-US2020049306

PATIENT
  Sex: Female

DRUGS (1)
  1. BENLYSTA [Suspect]
     Active Substance: BELIMUMAB
     Indication: SYSTEMIC LUPUS ERYTHEMATOSUS
     Dosage: UNK
     Route: 065
     Dates: start: 201702

REACTIONS (11)
  - Amnesia [Unknown]
  - Cough [Unknown]
  - Headache [Unknown]
  - Anger [Unknown]
  - Cognitive disorder [Unknown]
  - White matter lesion [Unknown]
  - Anxiety [Unknown]
  - Depression [Unknown]
  - Pain in extremity [Unknown]
  - Condition aggravated [Unknown]
  - Product dose omission [Unknown]
